FAERS Safety Report 8015980-5 (Version None)
Quarter: 2011Q4

REPORT INFORMATION
  Report Type: 
  Country: None (occurrence: None)
  Receive Date: 20111223
  Receipt Date: 20111213
  Transmission Date: 20120403
  Serious: Yes (Hospitalization, Other)
  Sender: FDA-Public Use
  Company Number: SAN_00003_2011

PATIENT
  Age: 72 Year
  Sex: Female

DRUGS (7)
  1. METOCLOPRAMIDE [Suspect]
     Indication: PRODUCT USED FOR UNKNOWN INDICATION
     Dosage: (DF)
  2. OMEPRAZOLE [Concomitant]
  3. ENALAPRIL (SNALAPRIL) [Suspect]
     Indication: PRODUCT USED FOR UNKNOWN INDICATION
     Dosage: (5 MG/DAY)
  4. DICLOFENAC SODIUM [Suspect]
     Indication: PRODUCT USED FOR UNKNOWN INDICATION
     Dosage: (DF)
  5. FUROSEMIDE [Concomitant]
  6. ACETYL SALICYLIC ACID USP BAT [Concomitant]
  7. METFORMIN HCL [Suspect]
     Indication: TYPE 2 DIABETES MELLITUS
     Dosage: (850 MG 1X/12 HOURS)

REACTIONS (22)
  - HYPOTENSION [None]
  - LACTIC ACIDOSIS [None]
  - TOXICITY TO VARIOUS AGENTS [None]
  - HYPOVOLAEMIA [None]
  - ABDOMINAL DISCOMFORT [None]
  - ANURIA [None]
  - DRUG LEVEL INCREASED [None]
  - TACHYPNOEA [None]
  - BLOOD GLUCOSE INCREASED [None]
  - BLOOD BICARBONATE DECREASED [None]
  - BLOOD CHLORIDE DECREASED [None]
  - ELECTROCARDIOGRAM P WAVE ABNORMAL [None]
  - RENAL FAILURE ACUTE [None]
  - VOMITING [None]
  - BLOOD SODIUM DECREASED [None]
  - HYPERKALAEMIA [None]
  - OEDEMA [None]
  - PAIN IN EXTREMITY [None]
  - OLIGURIA [None]
  - ELECTROCARDIOGRAM QRS COMPLEX PROLONGED [None]
  - OXYGEN SATURATION DECREASED [None]
  - ASTHENIA [None]
